FAERS Safety Report 20394912 (Version 1)
Quarter: 2022Q1

REPORT INFORMATION
  Report Type: Report from Study
  Country: IT (occurrence: IT)
  Receive Date: 20220130
  Receipt Date: 20220130
  Transmission Date: 20220424
  Serious: Yes (Other)
  Sender: FDA-Public Use
  Company Number: IT-JAZZ-2018-IT-000783

PATIENT
  Age: 52 Year
  Sex: Male

DRUGS (1)
  1. DEFITELIO [Suspect]
     Active Substance: DEFIBROTIDE SODIUM
     Indication: Venoocclusive disease
     Dosage: 6 MG/KG, QID

REACTIONS (5)
  - Haemorrhage [Unknown]
  - Fatigue [Unknown]
  - Blood creatinine increased [Unknown]
  - Enzyme level increased [Unknown]
  - Off label use [Unknown]
